FAERS Safety Report 10478317 (Version 1)
Quarter: 2014Q3

REPORT INFORMATION
  Report Type: Spontaneous
  Country: US (occurrence: None)
  Receive Date: 20140925
  Receipt Date: 20140925
  Transmission Date: 20150326
  Serious: No
  Sender: FDA-Public Use
  Company Number: None

PATIENT
  Age: 22 Year
  Sex: Female
  Weight: 54.43 kg

DRUGS (1)
  1. VIIBRYD [Suspect]
     Active Substance: VILAZODONE HYDROCHLORIDE
     Indication: DEPRESSION
     Route: 048
     Dates: start: 20140731, end: 20140902

REACTIONS (10)
  - Sleep paralysis [None]
  - Nausea [None]
  - Hypoaesthesia [None]
  - Somnolence [None]
  - Paraesthesia [None]
  - Lethargy [None]
  - Nightmare [None]
  - Crying [None]
  - Dry mouth [None]
  - Diarrhoea [None]

NARRATIVE: CASE EVENT DATE: 20140811
